FAERS Safety Report 4941508-X (Version None)
Quarter: 2006Q1

REPORT INFORMATION
  Report Type: 
  Country: None (occurrence: None)
  Receive Date: 20060308
  Receipt Date: 20060303
  Transmission Date: 20060701
  Serious: Yes (Other)
  Sender: FDA-Public Use
  Company Number: FI-2004-025090

PATIENT
  Age: 55 Year
  Sex: Female
  Weight: 76 kg

DRUGS (2)
  1. LEVONORGESTREL [Suspect]
     Dosage: 10 UG/DAY, CONT, INTRA-UTERINE
     Route: 015
     Dates: start: 20010321, end: 20040304
  2. CLIMARA [Suspect]
     Dosage: 50 UG/DAY, CONT, TRANSDERMAL
     Route: 062
     Dates: start: 20010321, end: 20040304

REACTIONS (1)
  - BREAST CANCER FEMALE [None]
